FAERS Safety Report 5012297-8 (Version None)
Quarter: 2006Q2

REPORT INFORMATION
  Report Type: 
  Country: None (occurrence: None)
  Receive Date: 20060524
  Receipt Date: 20060517
  Transmission Date: 20061013
  Serious: Yes (Hospitalization)
  Sender: FDA-Public Use
  Company Number: 2005-BP-21845RO

PATIENT
  Age: 61 Year
  Sex: Female

DRUGS (4)
  1. METHOTREXATE [Suspect]
     Dosage: 2.5MG QD X 6D AND 5MG QD X 1D /WEEK, PO
     Route: 048
  2. RISEDRONATE (RISEDRONATE SODIUM) [Concomitant]
  3. CALCICHEW (CALCIUM CARBONATE) [Concomitant]
  4. PANTOPRAZOLE SODIUM [Concomitant]

REACTIONS (4)
  - CELLULITIS [None]
  - EPISTAXIS [None]
  - MUCOSAL INFLAMMATION [None]
  - PANCYTOPENIA [None]
